FAERS Safety Report 12214376 (Version 2)
Quarter: 2020Q3

REPORT INFORMATION
  Report Type: Report from Study
  Country: KR (occurrence: KR)
  Receive Date: 20160328
  Receipt Date: 20160509
  Transmission Date: 20201104
  Serious: Yes (Death)
  Sender: FDA-Public Use
  Company Number: KR-JNJFOC-20160323445

PATIENT
  Age: 73 Year
  Sex: Male

DRUGS (14)
  1. PLACEBO [Suspect]
     Active Substance: UNSPECIFIED INGREDIENT
     Indication: PANCREATIC CARCINOMA METASTATIC
     Dates: start: 20160317
  2. URSA [Concomitant]
     Indication: BLOOD BILIRUBIN INCREASED
     Route: 048
     Dates: start: 20160307
  3. MEGESTROL [Concomitant]
     Active Substance: MEGESTROL
     Indication: DECREASED APPETITE
     Dosage: 1 PKG
     Route: 048
     Dates: start: 20160307
  4. BLINDED; IBRUTINI [Suspect]
     Active Substance: IBRUTINIB
  5. GEMCITABINE. [Suspect]
     Active Substance: GEMCITABINE
     Indication: PANCREATIC CARCINOMA METASTATIC
     Dosage: DAY 1. 8, 15 OF CYCLE
     Dates: start: 20160317
  6. TRAMADOL. [Concomitant]
     Active Substance: TRAMADOL
     Dosage: 37.5 MG/AAP 325 1 TABLET MG
     Route: 048
     Dates: start: 20160317
  7. NAB?PACLITAXEL [Suspect]
     Active Substance: PACLITAXEL
     Indication: PANCREATIC CARCINOMA METASTATIC
     Dosage: DAY 1, 8, 15 OF CYCLE
     Dates: start: 20160317
  8. URSA [Concomitant]
     Indication: BLOOD ALKALINE PHOSPHATASE INCREASED
     Route: 048
  9. URSA [Concomitant]
     Indication: BLOOD ALKALINE PHOSPHATASE INCREASED
     Route: 048
     Dates: start: 20160307
  10. PANCREATIN [Concomitant]
     Active Substance: PANCRELIPASE
     Indication: DYSPEPSIA
     Dosage: ENTERIC COATED PELLETS, 1 CAPSULE
     Route: 048
     Dates: start: 20160308
  11. TRAMADOL. [Concomitant]
     Active Substance: TRAMADOL
     Indication: BACK PAIN
     Route: 048
     Dates: start: 20160308, end: 20160308
  12. BLINDED; IBRUTINI [Suspect]
     Active Substance: IBRUTINIB
     Indication: PANCREATIC CARCINOMA METASTATIC
     Dates: start: 20160317
  13. URSA [Concomitant]
     Indication: BLOOD BILIRUBIN INCREASED
     Route: 048
  14. PANTOPRAZOLE [Concomitant]
     Active Substance: PANTOPRAZOLE
     Indication: GASTRITIS PROPHYLAXIS
     Route: 048
     Dates: start: 20160307

REACTIONS (1)
  - Gastrointestinal haemorrhage [Fatal]

NARRATIVE: CASE EVENT DATE: 20160318
